FAERS Safety Report 5906286-6 (Version None)
Quarter: 2008Q4

REPORT INFORMATION
  Report Type: 
  Country: None (occurrence: None)
  Receive Date: 20081002
  Receipt Date: 20080922
  Transmission Date: 20090506
  Serious: Yes (Death)
  Sender: FDA-Public Use
  Company Number: US-BAXTER-2008BH010097

PATIENT
  Age: 64 Year
  Sex: Male

DRUGS (2)
  1. FEIBA VH IMMUNO [Suspect]
     Indication: POST PROCEDURAL HAEMORRHAGE
     Route: 042
  2. FEIBA VH IMMUNO [Suspect]
     Indication: OFF LABEL USE
     Route: 042

REACTIONS (1)
  - MULTI-ORGAN FAILURE [None]
